FAERS Safety Report 6404005-0 (Version None)
Quarter: 2009Q4

REPORT INFORMATION
  Report Type: 
  Country: None (occurrence: None)
  Receive Date: 20091016
  Receipt Date: 20090706
  Transmission Date: 20100525
  Serious: Yes (Death, Hospitalization, Other)
  Sender: FDA-Public Use
  Company Number: US-ALEXION-A200900445

PATIENT
  Sex: Female

DRUGS (22)
  1. SOLIRIS [Suspect]
     Indication: PAROXYSMAL NOCTURNAL HAEMOGLOBINURIA
     Dosage: 600 MG, QW
     Route: 042
     Dates: start: 20090325, end: 20090415
  2. SOLIRIS [Suspect]
     Dosage: 900 MG, Q2W
     Route: 042
     Dates: start: 20090422, end: 20090506
  3. ATG                                /00575401/ [Concomitant]
     Indication: APLASTIC ANAEMIA
  4. CYCLOSPORINE [Concomitant]
     Dosage: UNK
  5. FEMARA [Concomitant]
     Dosage: UNK
     Route: 048
  6. ACYCLOVIR [Concomitant]
     Dosage: 40 MG, BID
     Route: 048
  7. ZYRTEC [Concomitant]
     Dosage: 10 MG, QD
     Route: 048
  8. ASPIRIN [Concomitant]
     Dosage: 81 MG, QD
     Route: 048
  9. DAPSONE [Concomitant]
     Dosage: 100 MG, QD
     Route: 048
  10. AXID [Concomitant]
     Dosage: 1000 MG, QD
     Route: 048
  11. FLUCONAZOLE [Concomitant]
     Dosage: 200 MG, QD
     Route: 048
  12. FOLIC ACID [Concomitant]
     Dosage: 4 MG, QD
     Route: 048
  13. DILAUDID [Concomitant]
     Dosage: 2 MG, QD
     Route: 048
  14. POTASSIUM CHLORIDE [Concomitant]
     Dosage: 10 MEQ, QD
     Route: 048
  15. COMPAZINE                          /00013302/ [Concomitant]
     Dosage: 10 MG, PRN
     Route: 048
  16. LORAZEPAM [Concomitant]
     Dosage: 1 MG, QD
     Route: 048
  17. ZOFRAN [Concomitant]
     Dosage: 8 MG, PRN, Q6H
     Route: 048
  18. PREVACID [Concomitant]
     Dosage: 30 MG, QD
  19. LETROZOLE [Concomitant]
     Dosage: 2.5 MG, QD
  20. NEUPOGEN [Concomitant]
     Dosage: 1600 MG, PRN, 3 X WEEK
  21. TYLENOL (CAPLET) [Concomitant]
     Dosage: UNK
     Route: 048
  22. STEROID [Concomitant]

REACTIONS (8)
  - ANAEMIA [None]
  - DIZZINESS [None]
  - DRUG INEFFECTIVE [None]
  - FALL [None]
  - FEBRILE NEUTROPENIA [None]
  - OVARIAN CANCER [None]
  - PLATELET COUNT DECREASED [None]
  - SUBARACHNOID HAEMORRHAGE [None]
